FAERS Safety Report 12071229 (Version 4)
Quarter: 2016Q1

REPORT INFORMATION
  Report Type: Report from Study
  Country: DE (occurrence: DE)
  Receive Date: 20160211
  Receipt Date: 20160303
  Transmission Date: 20160526
  Serious: Yes (Hospitalization, Other)
  Sender: FDA-Public Use
  Company Number: DE-GILEAD-2016-0196760

PATIENT
  Age: 65 Year
  Sex: Male
  Weight: 62 kg

DRUGS (17)
  1. TOREM                              /01036501/ [Concomitant]
     Active Substance: TORSEMIDE
     Dosage: 15 MG, UNK
     Route: 065
  2. UNACID                             /00903602/ [Concomitant]
     Dosage: 750 MG, UNK
     Route: 065
  3. PANTOPRAZOL [Concomitant]
     Active Substance: PANTOPRAZOLE SODIUM
     Dosage: 80 MG, UNK
     Route: 065
  4. VIGANTOLETTEN [Concomitant]
     Active Substance: CHOLECALCIFEROL
  5. MCP [Concomitant]
     Active Substance: METOCLOPRAMIDE HYDROCHLORIDE
     Dosage: UNK, PRN
     Route: 065
  6. LEDIPASVIR/SOFOSBUVIR [Suspect]
     Active Substance: LEDIPASVIR\SOFOSBUVIR
     Indication: CHRONIC HEPATITIS C
     Dosage: 1 DF, QD
     Route: 048
     Dates: start: 20150805, end: 20151027
  7. TROMCARDIN [Concomitant]
     Active Substance: MAGNESIUM ASPARTATE\POTASSIUM ASPARTATE
     Dosage: 2 DF, UNK
     Route: 065
  8. O2                                 /00150301/ [Concomitant]
     Active Substance: OXYGEN
     Dosage: 1 L, PRN
  9. O2                                 /00150301/ [Concomitant]
     Active Substance: OXYGEN
     Dosage: 2 L, PRN
  10. BIFITERAL [Concomitant]
     Active Substance: LACTULOSE
     Indication: CHRONIC HEPATITIS C
     Dosage: 40 ML, UNK
     Route: 065
  11. METOPROLOL SUCCINATE. [Concomitant]
     Active Substance: METOPROLOL SUCCINATE
     Indication: CARDIOVASCULAR DISORDER
     Dosage: 75 MG, UNK
     Route: 065
  12. SPIRIVA [Concomitant]
     Active Substance: TIOTROPIUM BROMIDE MONOHYDRATE
     Dosage: 10 UG, UNK
     Route: 065
  13. VIANI [Concomitant]
     Active Substance: FLUTICASONE PROPIONATE\SALMETEROL XINAFOATE
     Dosage: 2 DF, UNK
     Route: 055
  14. BERODUAL [Concomitant]
     Active Substance: FENOTEROL HYDROBROMIDE\IPRATROPIUM BROMIDE
     Dosage: UNK, PRN
     Route: 065
  15. ALDACTONE [Concomitant]
     Active Substance: SPIRONOLACTONE
     Indication: CHRONIC HEPATITIS C
     Dosage: 50 MG, UNK
     Route: 065
     Dates: end: 20151216
  16. REKAWAN [Concomitant]
     Active Substance: POTASSIUM CHLORIDE
     Dosage: 1000 IU, UNK
     Route: 065
  17. VITAMIN D [Concomitant]
     Active Substance: CHOLECALCIFEROL
     Dosage: 100 MG, UNK
     Route: 065

REACTIONS (2)
  - Therapeutic embolisation [Not Recovered/Not Resolved]
  - Artery dissection [Recovered/Resolved]

NARRATIVE: CASE EVENT DATE: 20160118
